FAERS Safety Report 12206579 (Version 1)
Quarter: 2016Q1

REPORT INFORMATION
  Report Type: Spontaneous
  Country: US (occurrence: None)
  Receive Date: 20160323
  Receipt Date: 20160323
  Transmission Date: 20160526
  Serious: Yes (Life-Threatening, Hospitalization)
  Sender: FDA-Public Use
  Company Number: None

PATIENT
  Age: 68 Year
  Sex: Male
  Weight: 64.86 kg

DRUGS (4)
  1. FISH OIL [Concomitant]
     Active Substance: FISH OIL
  2. JANUVIA [Suspect]
     Active Substance: SITAGLIPTIN PHOSPHATE
     Dosage: 10 ONCE DAILY
  3. VITAMIN D [Concomitant]
     Active Substance: CHOLECALCIFEROL
  4. VIT C ERICANASIA [Concomitant]

REACTIONS (9)
  - Abdominal pain upper [None]
  - Abdominal distension [None]
  - Pancreatitis [None]
  - Cardiac arrest [None]
  - Pharyngeal oedema [None]
  - Pain [None]
  - Myocardial infarction [None]
  - Back pain [None]
  - Swollen tongue [None]

NARRATIVE: CASE EVENT DATE: 20150506
